FAERS Safety Report 4579372-3 (Version None)
Quarter: 2005Q1

REPORT INFORMATION
  Report Type: 
  Country: None (occurrence: None)
  Receive Date: 20050210
  Receipt Date: 20050210
  Transmission Date: 20050727
  Serious: Yes (Death, Life-Threatening, Hospitalization)
  Sender: FDA-Public Use
  Company Number: None

PATIENT
  Sex: Female
  Weight: 81.6475 kg

DRUGS (7)
  1. AVONEX [Suspect]
     Indication: MULTIPLE SCLEROSIS
     Dosage: 30 MCG ONCE A WEEK INTRAMUSCU
     Route: 030
     Dates: start: 19960815, end: 20041015
  2. AVONEX [Suspect]
  3. AVONEX [Suspect]
  4. AVONEX [Suspect]
  5. AVONEX [Suspect]
  6. AVONEX [Suspect]
  7. AVONEX [Suspect]

REACTIONS (5)
  - BODY TEMPERATURE INCREASED [None]
  - CEREBROVASCULAR ACCIDENT [None]
  - DYSPHAGIA [None]
  - URINARY TRACT INFECTION [None]
  - VOMITING [None]
